FAERS Safety Report 7388025-8 (Version None)
Quarter: 2011Q1

REPORT INFORMATION
  Report Type: 
  Country: None (occurrence: None)
  Receive Date: 20110322
  Receipt Date: 20110307
  Transmission Date: 20110831
  Serious: Yes (Life-Threatening, Hospitalization, Disabling, Other)
  Sender: FDA-Public Use
  Company Number: 09-000921

PATIENT
  Age: 21 Year
  Sex: Female
  Weight: 95 kg

DRUGS (5)
  1. FEMCOM FE (NORETHINDRONE, ETHINYL ESTRADIOL) CHEWABLE, 35/400UG [Suspect]
     Dosage: 35/400 UG, QD, ORAL
     Route: 048
     Dates: start: 20070123
  2. IBUPROFEN [Concomitant]
  3. FLEXERIL [Concomitant]
  4. ACETAMINOPHEN [Concomitant]
  5. PERCOCET [Concomitant]

REACTIONS (48)
  - HYPOTENSION [None]
  - HYPOKALAEMIA [None]
  - ABDOMINAL PAIN [None]
  - HEART RATE IRREGULAR [None]
  - HEART RATE DECREASED [None]
  - VAGINAL DISCHARGE [None]
  - NASOPHARYNGITIS [None]
  - EYE PRURITUS [None]
  - GASTROOESOPHAGEAL REFLUX DISEASE [None]
  - ELECTROCARDIOGRAM ABNORMAL [None]
  - HAEMATOCHEZIA [None]
  - PNEUMONIA [None]
  - GASTROINTESTINAL MOTILITY DISORDER [None]
  - FALL [None]
  - EYE IRRITATION [None]
  - NAUSEA [None]
  - HELICOBACTER TEST POSITIVE [None]
  - URINARY TRACT INFECTION [None]
  - ABDOMINAL PAIN UPPER [None]
  - BRAIN HERNIATION [None]
  - NECK PAIN [None]
  - HYPERTENSION [None]
  - ERYTHEMA [None]
  - HEADACHE [None]
  - DIARRHOEA [None]
  - MUSCULOSKELETAL PAIN [None]
  - CHEST PAIN [None]
  - WEIGHT DECREASED [None]
  - RESPIRATORY FAILURE [None]
  - EMBOLIC CEREBRAL INFARCTION [None]
  - BLOOD ALKALINE PHOSPHATASE INCREASED [None]
  - OROPHARYNGEAL PAIN [None]
  - LIP SWELLING [None]
  - SINUSITIS [None]
  - PHLEBITIS [None]
  - VENTRICULAR EXTRASYSTOLES [None]
  - ANAEMIA [None]
  - LEUKOCYTOSIS [None]
  - BREAST CYST [None]
  - TACHYCARDIA [None]
  - RASH MACULAR [None]
  - PAIN IN EXTREMITY [None]
  - ANTICONVULSANT DRUG LEVEL DECREASED [None]
  - VULVOVAGINAL MYCOTIC INFECTION [None]
  - BLOOD URINE PRESENT [None]
  - RASH [None]
  - THROMBOPHLEBITIS [None]
  - MEDICAL DEVICE PAIN [None]
